FAERS Safety Report 19002977 (Version 1)
Quarter: 2021Q1

REPORT INFORMATION
  Report Type: Report from Study
  Country: AU (occurrence: AU)
  Receive Date: 20210312
  Receipt Date: 20210312
  Transmission Date: 20210420
  Serious: Yes (Hospitalization)
  Sender: FDA-Public Use
  Company Number: AU-SA-2020SA311367

PATIENT
  Age: 77 Year
  Sex: Female

DRUGS (14)
  1. IRBESARTAN. [Concomitant]
     Active Substance: IRBESARTAN
     Dosage: 37.5 MG, HS
  2. PANTOPRAZOLE [Concomitant]
     Active Substance: PANTOPRAZOLE
     Indication: GASTROOESOPHAGEAL REFLUX DISEASE
     Dosage: 20 MG, QD
     Route: 065
     Dates: start: 1995
  3. FRUSEMIDE [FUROSEMIDE] [Concomitant]
     Active Substance: FUROSEMIDE
     Indication: RENAL AMYLOIDOSIS
     Dosage: 20 MG, QD
     Dates: start: 20200908
  4. IRBESARTAN. [Concomitant]
     Active Substance: IRBESARTAN
     Dosage: 37.5 MG, HS
     Dates: start: 20200908
  5. METOPROLOL. [Concomitant]
     Active Substance: METOPROLOL
     Dosage: 25 MG, BID
  6. ELECTROLYTES NOS [Suspect]
     Active Substance: ELECTROLYTES NOS
     Dosage: UNK, FLUIDS
     Route: 042
     Dates: start: 20210210
  7. FILGRASTIM [Concomitant]
     Active Substance: FILGRASTIM
     Indication: NEUTROPENIA
     Dosage: 300 MG/ 0.5ML
     Route: 065
  8. LENALIDOMIDE. [Suspect]
     Active Substance: LENALIDOMIDE
     Indication: PLASMA CELL MYELOMA
     Dosage: 15 MG
     Route: 065
     Dates: start: 20200507, end: 20210210
  9. VALACICLOVIR [Concomitant]
     Active Substance: VALACYCLOVIR HYDROCHLORIDE
     Indication: PROPHYLAXIS
     Dosage: 500 MG, BID
     Route: 065
  10. DEXAMETHASONE. [Suspect]
     Active Substance: DEXAMETHASONE
     Indication: PLASMA CELL MYELOMA
     Dosage: 20 MG
     Route: 065
     Dates: start: 20200507, end: 20210204
  11. GASTROGEL ANTACID [Concomitant]
     Indication: GASTROOESOPHAGEAL REFLUX DISEASE
     Dosage: 20 ML, PRN
     Dates: start: 20210217
  12. ISATUXIMAB [Suspect]
     Active Substance: ISATUXIMAB
     Indication: PLASMA CELL MYELOMA
     Dosage: 650 MG,(START DATE:06?NOV?2020 00:00)
     Route: 065
     Dates: end: 20210128
  13. COLECALCIFEROL [Concomitant]
     Active Substance: CHOLECALCIFEROL
     Indication: PROPHYLAXIS
     Dosage: 500 MG, BID
     Route: 065
  14. CALCIUM CARBONATE. [Concomitant]
     Active Substance: CALCIUM CARBONATE
     Dosage: 1500 MG, QD
     Route: 065

REACTIONS (2)
  - Pneumonia [Recovered/Resolved with Sequelae]
  - Bacterial colitis [Recovered/Resolved]

NARRATIVE: CASE EVENT DATE: 20201029
